FAERS Safety Report 5857421-X (Version None)
Quarter: 2008Q3

REPORT INFORMATION
  Report Type: 
  Country: None (occurrence: None)
  Receive Date: 20080825
  Receipt Date: 20080825
  Transmission Date: 20090109
  Serious: Yes (Hospitalization)
  Sender: FDA-Public Use
  Company Number: None

PATIENT
  Sex: Male
  Weight: 108.7 kg

DRUGS (10)
  1. SORAFENIB [Suspect]
     Indication: PROSTATE CANCER
     Dosage: 400 MG PO BID PO
     Route: 048
     Dates: start: 20080320
  2. TAXOTERE [Suspect]
     Indication: PROSTATE CANCER
     Dosage: 75 MG/M2 Q3WEEKS IV
     Route: 042
     Dates: start: 20080320
  3. OMAPRAZOLE [Concomitant]
  4. MOTOPROLOL [Concomitant]
  5. DECADRON SRC [Concomitant]
  6. REGLAN [Concomitant]
  7. LUPRON [Concomitant]
  8. PREDNISONE TAB [Concomitant]
  9. BENAZEPRIL HYDROCHLORIDE [Concomitant]
  10. NORCO [Concomitant]

REACTIONS (6)
  - ATRIAL FIBRILLATION [None]
  - CHILLS [None]
  - HAEMOGLOBIN DECREASED [None]
  - PNEUMONIA [None]
  - URINARY TRACT INFECTION [None]
  - WHITE BLOOD CELL COUNT INCREASED [None]
